FAERS Safety Report 4451992-6 (Version None)
Quarter: 2004Q3

REPORT INFORMATION
  Report Type: 
  Country: None (occurrence: None)
  Receive Date: 20040915
  Receipt Date: 20040915
  Transmission Date: 20050211
  Serious: Yes (Hospitalization)
  Sender: FDA-Public Use
  Company Number: None

PATIENT
  Sex: Female
  Weight: 68.4932 kg

DRUGS (2)
  1. LIDOCAINE W/ EPINEPHRINE [Suspect]
     Indication: DENTAL CARE
     Dates: start: 20040503
  2. BIRTH CONTROL PILLS [Concomitant]

REACTIONS (7)
  - ANAESTHETIC COMPLICATION [None]
  - ANAESTHETIC COMPLICATION CARDIAC [None]
  - ANAESTHETIC COMPLICATION NEUROLOGICAL [None]
  - DIZZINESS [None]
  - FATIGUE [None]
  - HYPOAESTHESIA [None]
  - PALPITATIONS [None]
